FAERS Safety Report 15599112 (Version 3)
Quarter: 2019Q3

REPORT INFORMATION
  Report Type: Report from Study
  Country: GB (occurrence: GB)
  Receive Date: 20181108
  Receipt Date: 20190930
  Transmission Date: 20191004
  Serious: Yes (Other)
  Sender: FDA-Public Use
  Company Number: GB-GILEAD-2018-0371983

PATIENT
  Age: 80 Year
  Sex: Male

DRUGS (16)
  1. HYDROCORTISONE. [Concomitant]
     Active Substance: HYDROCORTISONE
     Indication: CHRONIC LYMPHOCYTIC LEUKAEMIA
     Dosage: 100.0 MG, PER PROTOCOL
     Route: 042
     Dates: start: 20150521, end: 20150813
  2. COTRIMOXAZOLE [Concomitant]
     Active Substance: SULFAMETHOXAZOLE\TRIMETHOPRIM
     Indication: CHRONIC LYMPHOCYTIC LEUKAEMIA
     Dosage: 960.0 MG, PER PROTOCOL
     Route: 048
     Dates: start: 20150521
  3. ADCAL [CALCIUM CARBONATE] [Concomitant]
     Indication: PROPHYLAXIS
     Dosage: 1.5 MG, QD
     Dates: start: 20150604
  4. BENDAMUSTINE [Suspect]
     Active Substance: BENDAMUSTINE
     Indication: CHRONIC LYMPHOCYTIC LEUKAEMIA
     Dosage: 125.0 MG, Q1MONTH
     Route: 042
     Dates: start: 20150521, end: 20150814
  5. ACICLOVIR [Concomitant]
     Active Substance: ACYCLOVIR
     Indication: CHRONIC LYMPHOCYTIC LEUKAEMIA
     Dosage: 400.0 MG, PER PROTOCOL
     Route: 048
     Dates: start: 20150521, end: 20150908
  6. TARDISC [Concomitant]
     Indication: ANGINA PECTORIS
     Dosage: 60.0 MG, QD
     Route: 048
  7. TAMSULOSIN [Concomitant]
     Active Substance: TAMSULOSIN
     Indication: PROPHYLAXIS
     Dosage: 400.0 UG, QD
     Route: 048
     Dates: start: 20150611
  8. IDELALISIB [Suspect]
     Active Substance: IDELALISIB
     Indication: CHRONIC LYMPHOCYTIC LEUKAEMIA
     Dosage: 150 MG, BID
     Route: 048
     Dates: start: 20150521, end: 20150811
  9. ALLOPURINOL. [Concomitant]
     Active Substance: ALLOPURINOL
  10. SIMVASTATIN. [Concomitant]
     Active Substance: SIMVASTATIN
     Indication: PROPHYLAXIS
     Dosage: 40.0 MG, QD
     Route: 048
  11. CHLORPHENIRAMIN [Concomitant]
     Active Substance: CHLORPHENIRAMINE MALEATE
     Indication: CHRONIC LYMPHOCYTIC LEUKAEMIA
     Dosage: 10.0 MG, PER PROTOCOL
     Route: 042
     Dates: start: 20150521, end: 20150813
  12. LANSOPRAZOLE. [Concomitant]
     Active Substance: LANSOPRAZOLE
     Indication: PROPHYLAXIS
     Dosage: 30.0 MG, QD
     Route: 048
     Dates: start: 20150529
  13. OFATUMUMAB [Suspect]
     Active Substance: OFATUMUMAB
     Indication: CHRONIC LYMPHOCYTIC LEUKAEMIA
     Dosage: 1000.0 MG, Q1MONTH
     Route: 042
     Dates: start: 20150528, end: 20150813
  14. METOCLOPRAMIDE. [Concomitant]
     Active Substance: METOCLOPRAMIDE
  15. PARACETAMOL [Concomitant]
     Active Substance: ACETAMINOPHEN
     Indication: CHRONIC LYMPHOCYTIC LEUKAEMIA
     Dosage: 1.0 G, PER PROTOCOL
     Route: 048
     Dates: start: 20150521, end: 20150813
  16. G-CSF [Concomitant]
     Active Substance: GRANULOCYTE COLONY-STIMULATING FACTOR NOS

REACTIONS (1)
  - Squamous cell carcinoma of skin [Recovered/Resolved]

NARRATIVE: CASE EVENT DATE: 20170901
